FAERS Safety Report 5191119-9 (Version None)
Quarter: 2006Q4

REPORT INFORMATION
  Report Type: 
  Country: None (occurrence: None)
  Receive Date: 20061226
  Receipt Date: 20061222
  Transmission Date: 20070319
  Serious: Yes (Death)
  Sender: FDA-Public Use
  Company Number: PHBS2006CH19810

PATIENT
  Age: 26 Year
  Sex: Female

DRUGS (7)
  1. SEDONIUM [Concomitant]
  2. LEPONEX [Suspect]
     Indication: SCHIZOPHRENIA
     Dosage: 100 MG TO 600 MG/DAY
  3. LEPONEX [Suspect]
     Dosage: 500 MG/D
     Dates: start: 20060401
  4. LEPONEX [Suspect]
     Dosage: 600 MG/D
     Dates: start: 20060501
  5. LEPONEX [Suspect]
     Dosage: 800 MG/D
     Dates: start: 20060701
  6. LEPONEX [Suspect]
     Dosage: 500 MG TO 600 MG/D
     Dates: start: 20060901
  7. LEPONEX [Suspect]
     Dosage: MASSIVE OVERDOSE
     Dates: start: 20060926

REACTIONS (25)
  - BRAIN OEDEMA [None]
  - BREATH SOUNDS ABNORMAL [None]
  - CARDIAC ARREST [None]
  - COMA [None]
  - CONVULSION [None]
  - CYANOSIS [None]
  - DRUG LEVEL ABOVE THERAPEUTIC [None]
  - DRUG TOXICITY [None]
  - HEART RATE INCREASED [None]
  - HYPOTENSION [None]
  - HYPOTONIA [None]
  - INCREASED BRONCHIAL SECRETION [None]
  - INTENTIONAL OVERDOSE [None]
  - LOSS OF CONSCIOUSNESS [None]
  - MYOCLONUS [None]
  - PNEUMONIA ASPIRATION [None]
  - PULSE PRESSURE DECREASED [None]
  - PUPIL FIXED [None]
  - REFLEXES ABNORMAL [None]
  - REMOVAL OF FOREIGN BODY FROM RESPIRATORY TRACT [None]
  - RESPIRATORY DEPRESSION [None]
  - RESUSCITATION [None]
  - STATUS EPILEPTICUS [None]
  - TACHYPNOEA [None]
  - TRACHEOSTOMY [None]
